FAERS Safety Report 12872401 (Version 1)
Quarter: 2016Q4

REPORT INFORMATION
  Report Type: Report from Study
  Country: US (occurrence: US)
  Receive Date: 20161021
  Receipt Date: 20161021
  Transmission Date: 20170207
  Serious: No
  Sender: FDA-Public Use
  Company Number: US-AMGEN-USASL2016136183

PATIENT
  Age: 55 Year
  Sex: Female

DRUGS (2)
  1. ENBREL [Suspect]
     Active Substance: ETANERCEPT
     Indication: RHEUMATOID ARTHRITIS
     Dosage: 50 MG, QWK
     Route: 065
     Dates: start: 201605
  2. SINGULAIR [Concomitant]
     Active Substance: MONTELUKAST SODIUM
     Dosage: UNK

REACTIONS (1)
  - Sinusitis [Recovering/Resolving]

NARRATIVE: CASE EVENT DATE: 2016
